FAERS Safety Report 8201392-8 (Version None)
Quarter: 2012Q1

REPORT INFORMATION
  Report Type: 
  Country: None (occurrence: None)
  Receive Date: 20120307
  Receipt Date: 20110902
  Transmission Date: 20120608
  Serious: Yes (Other)
  Sender: FDA-Public Use
  Company Number: US-IGSA-IG906

PATIENT
  Age: 65 Year
  Sex: Female
  Weight: 64 kg

DRUGS (6)
  1. LORTAB PRN [Concomitant]
  2. FLEBOGAMMA [Suspect]
     Indication: PRIMARY IMMUNODEFICIENCY SYNDROME
     Dosage: 30 G
     Dates: start: 20110216, end: 20110216
  3. AMBIAN PRN [Concomitant]
  4. LEXAPRO [Concomitant]
  5. FLEBOGAMMA 5% DIF [Suspect]
     Indication: PRIMARY IMMUNODEFICIENCY SYNDROME
     Dosage: 30 G
     Dates: start: 20110104, end: 20110505
  6. LOMOTIL PRN [Concomitant]

REACTIONS (7)
  - PYREXIA [None]
  - LIVER FUNCTION TEST ABNORMAL [None]
  - HEPATITIS C ANTIBODY POSITIVE [None]
  - PRURITUS [None]
  - SERUM SICKNESS [None]
  - URTICARIA [None]
  - CHILLS [None]
